FAERS Safety Report 8501285-2 (Version None)
Quarter: 2012Q3

REPORT INFORMATION
  Report Type: 
  Country: None (occurrence: None)
  Receive Date: 20120710
  Receipt Date: 20120702
  Transmission Date: 20120928
  Serious: Yes (Death)
  Sender: FDA-Public Use
  Company Number: US-FRI-1000036809

PATIENT
  Age: 44 Year
  Sex: Male

DRUGS (12)
  1. ZANAFLEX [Concomitant]
  2. CLARITIN [Concomitant]
  3. SAVELLA [Suspect]
     Dosage: 25 MG
     Route: 048
     Dates: start: 20120301, end: 20120101
  4. SAVELLA [Suspect]
     Dosage: 100 MG
     Route: 048
     Dates: start: 20120101, end: 20120101
  5. CITRACAL [Concomitant]
  6. VITAMIN D [Concomitant]
  7. OXYCODONE HCL [Concomitant]
  8. SAVELLA [Suspect]
     Dosage: 50 MG
     Route: 048
     Dates: start: 20120101, end: 20120101
  9. XANAX [Concomitant]
  10. PROTONIX [Concomitant]
  11. GLUCOSAMINE [Concomitant]
  12. SAVELLA [Suspect]
     Indication: FIBROMYALGIA
     Dosage: 12.5 MG
     Route: 048
     Dates: start: 20120301, end: 20120301

REACTIONS (1)
  - COMPLETED SUICIDE [None]
